FAERS Safety Report 9069253 (Version 2)
Quarter: 2013Q1

REPORT INFORMATION
  Report Type: Report from Study
  Country: US (occurrence: US)
  Receive Date: 20130214
  Receipt Date: 20130214
  Transmission Date: 20140127
  Serious: Yes (Death, Hospitalization)
  Sender: FDA-Public Use
  Company Number: US-ASTELLAS-2013US001059

PATIENT
  Age: 80 Year
  Sex: Female
  Weight: 61 kg

DRUGS (2)
  1. ERLOTINIB TABLET [Suspect]
     Indication: NON-SMALL CELL LUNG CANCER
     Dosage: 150 MG, UID/QD
     Route: 048
     Dates: start: 20110921, end: 20130122
  2. MK2206 [Suspect]
     Indication: NON-SMALL CELL LUNG CANCER
     Dosage: 45 MG, QOD
     Route: 048
     Dates: start: 20110921, end: 20130121

REACTIONS (3)
  - Pneumonia [Fatal]
  - Malignant neoplasm progression [Fatal]
  - Dyspnoea [Not Recovered/Not Resolved]
